FAERS Safety Report 6907731-X (Version None)
Quarter: 2010Q3

REPORT INFORMATION
  Report Type: 
  Country: None (occurrence: None)
  Receive Date: 20100709
  Receipt Date: 20090908
  Transmission Date: 20110219
  Serious: Yes (Other)
  Sender: FDA-Public Use
  Company Number: 2009090010

PATIENT
  Age: 40 Year
  Sex: Female

DRUGS (2)
  1. SOMA [Suspect]
     Dosage: DAILY
  2. TRANXENE [Suspect]
     Dosage: DAILY

REACTIONS (1)
  - CONVULSION [None]
